FAERS Safety Report 9647651 (Version 1)
Quarter: 2013Q4

REPORT INFORMATION
  Report Type: Spontaneous
  Country: TW (occurrence: TW)
  Receive Date: 20131028
  Receipt Date: 20131028
  Transmission Date: 20140711
  Serious: Yes (Other)
  Sender: FDA-Public Use
  Company Number: TW-BRISTOL-MYERS SQUIBB COMPANY-19602630

PATIENT
  Sex: Female

DRUGS (1)
  1. BARACLUDE [Suspect]
     Indication: ACUTE HEPATITIS B
     Dates: start: 2008, end: 201305

REACTIONS (3)
  - Foetal disorder [Recovered/Resolved]
  - Abortion induced [Unknown]
  - Pregnancy [Recovered/Resolved]
